FAERS Safety Report 10924639 (Version 1)
Quarter: 2015Q1

REPORT INFORMATION
  Report Type: Spontaneous
  Country: US (occurrence: None)
  Receive Date: 20150129
  Receipt Date: 20150129
  Transmission Date: 20150721
  Serious: No
  Sender: FDA-Public Use
  Company Number: A-US2014-103371

PATIENT
  Age: 51 Year
  Sex: Female

DRUGS (3)
  1. REVATIO (SILDENAFIL CITRATE) [Concomitant]
  2. OPSUMIT [Suspect]
     Active Substance: MACITENTAN
     Indication: COR PULMONALE CHRONIC
     Route: 048
     Dates: start: 20140110
  3. VELETRI [Suspect]
     Active Substance: EPOPROSTENOL
     Indication: COR PULMONALE CHRONIC
     Dosage: 13 NG/KG, PER MIN
     Route: 041
     Dates: start: 20140714

REACTIONS (2)
  - Nausea [None]
  - Device alarm issue [None]
